FAERS Safety Report 10144395 (Version 1)
Quarter: 2014Q2

REPORT INFORMATION
  Report Type: Spontaneous
  Country: US (occurrence: US)
  Receive Date: 20140430
  Receipt Date: 20140430
  Transmission Date: 20141212
  Serious: No
  Sender: FDA-Public Use
  Company Number: US-009507513-1404USA008486

PATIENT
  Sex: Female

DRUGS (1)
  1. CLARITIN [Suspect]
     Indication: EAR PAIN
     Dosage: UNK UNK, UNKNOWN
     Route: 048
     Dates: start: 20140410

REACTIONS (2)
  - Off label use [Unknown]
  - Accidental overdose [Unknown]
